FAERS Safety Report 9865531 (Version 1)
Quarter: 2014Q1

REPORT INFORMATION
  Report Type: Spontaneous
  Country: US (occurrence: US)
  Receive Date: 20140203
  Receipt Date: 20140203
  Transmission Date: 20141002
  Serious: No
  Sender: FDA-Public Use
  Company Number: US-ALLERGAN-1308986US

PATIENT
  Age: 64 Year
  Sex: Female

DRUGS (6)
  1. RESTASIS [Suspect]
     Indication: DRY EYE
     Dosage: 2 GTT, BID
     Route: 047
     Dates: start: 20130614, end: 20130614
  2. RESTASIS [Suspect]
     Dosage: 2 GTT, BID
     Route: 047
     Dates: start: 201305
  3. OXYCODONE [Concomitant]
     Indication: FIBROMYALGIA
     Dosage: 5 MG, PRN
     Route: 048
     Dates: start: 201301
  4. GABAPENTIN [Concomitant]
     Indication: FIBROMYALGIA
     Dosage: 100 MG, BID
     Route: 048
     Dates: start: 201301
  5. VITAMIN B SHOTS [Concomitant]
     Indication: SUPPLEMENTATION THERAPY
     Dosage: UNK
  6. VITAMIN D                          /00107901/ [Concomitant]
     Indication: SUPPLEMENTATION THERAPY
     Dosage: 5000 UNITS, Q WEEK
     Route: 048

REACTIONS (8)
  - Eye allergy [Unknown]
  - Vision blurred [Recovering/Resolving]
  - Eye pain [Unknown]
  - Eye swelling [Unknown]
  - Eye discharge [Unknown]
  - Eye discharge [Unknown]
  - Eye pruritus [Unknown]
  - Eye discharge [Unknown]
